FAERS Safety Report 12185597 (Version 2)
Quarter: 2016Q1

REPORT INFORMATION
  Report Type: Spontaneous
  Country: US (occurrence: US)
  Receive Date: 20160316
  Receipt Date: 20160324
  Transmission Date: 20160526
  Serious: Yes (Other)
  Sender: FDA-Public Use
  Company Number: US-TEVA-642866USA

PATIENT
  Age: 26 Year
  Sex: Female

DRUGS (1)
  1. ZECUITY [Suspect]
     Active Substance: SUMATRIPTAN SUCCINATE
     Indication: MIGRAINE
     Route: 062
     Dates: start: 201602, end: 201602

REACTIONS (7)
  - Application site burn [Not Recovered/Not Resolved]
  - Application site pruritus [Unknown]
  - Application site swelling [Not Recovered/Not Resolved]
  - Application site scab [Not Recovered/Not Resolved]
  - Application site urticaria [Recovering/Resolving]
  - Application site erythema [Recovering/Resolving]
  - Application site pain [Not Recovered/Not Resolved]

NARRATIVE: CASE EVENT DATE: 20160216
